FAERS Safety Report 4591159-4 (Version None)
Quarter: 2005Q1

REPORT INFORMATION
  Report Type: 
  Country: None (occurrence: None)
  Receive Date: 20050218
  Receipt Date: 20050204
  Transmission Date: 20050727
  Serious: Yes (Hospitalization)
  Sender: FDA-Public Use
  Company Number: 2005AP00994

PATIENT
  Age: 69 Year
  Sex: Male

DRUGS (7)
  1. LIGNOCAINE [Suspect]
     Indication: ANAESTHESIA
  2. CEFAZOLIN SODIUM [Suspect]
     Indication: ANAESTHESIA
     Dates: start: 20030828, end: 20030828
  3. ATENOLOL [Concomitant]
  4. KETOPROFEN [Concomitant]
  5. FENTANYL [Suspect]
     Dates: start: 20030828, end: 20030828
  6. MIDAZOLAM [Suspect]
     Dates: start: 20030828, end: 20030828
  7. ROCURONIUM BROMIDE [Suspect]

REACTIONS (3)
  - ANAPHYLACTIC REACTION [None]
  - BRONCHOSPASM [None]
  - HYPOTENSION [None]
